FAERS Safety Report 25597637 (Version 1)
Quarter: 2025Q3

REPORT INFORMATION
  Report Type: Spontaneous
  Country: US (occurrence: US)
  Receive Date: 20250723
  Receipt Date: 20250723
  Transmission Date: 20251021
  Serious: No
  Sender: TEIKOKU
  Company Number: US-TPU-TPU-2025-00332

PATIENT

DRUGS (1)
  1. LIDOCAINE PATCH [Suspect]
     Active Substance: LIDOCAINE
     Indication: Product used for unknown indication

REACTIONS (1)
  - Arthritis [Unknown]
